FAERS Safety Report 6673206-9 (Version None)
Quarter: 2010Q2

REPORT INFORMATION
  Report Type: 
  Country: None (occurrence: None)
  Receive Date: 20100408
  Receipt Date: 20100326
  Transmission Date: 20101027
  Serious: Yes (Other)
  Sender: FDA-Public Use
  Company Number: AU-MERCK-0907USA02171

PATIENT
  Age: 49 Year
  Sex: Male

DRUGS (6)
  1. ISENTRESS [Suspect]
     Indication: HIV INFECTION
     Route: 048
  2. INDOCIN [Suspect]
     Indication: PAIN
     Route: 048
  3. IRBESARTAN [Suspect]
     Indication: ESSENTIAL HYPERTENSION
     Route: 065
  4. INTELENCE [Concomitant]
     Route: 048
  5. RITONAVIR [Suspect]
     Indication: HIV INFECTION
     Route: 065
  6. PREZISTA [Suspect]
     Indication: HIV INFECTION
     Route: 048
     Dates: start: 20080925, end: 20081014

REACTIONS (3)
  - BLOOD CREATININE INCREASED [None]
  - NEPHROPATHY [None]
  - RENAL FAILURE ACUTE [None]
